FAERS Safety Report 6142841-9 (Version None)
Quarter: 2009Q2

REPORT INFORMATION
  Report Type: 
  Country: None (occurrence: None)
  Receive Date: 20090403
  Receipt Date: 20090325
  Transmission Date: 20091009
  Serious: Yes (Hospitalization)
  Sender: FDA-Public Use
  Company Number: AU-BRISTOL-MYERS SQUIBB COMPANY-13875653

PATIENT
  Age: 24 Year
  Sex: Female

DRUGS (8)
  1. ABATACEPT [Suspect]
     Indication: CROHN'S DISEASE
     Dosage: ABATACEPT IP-29:19JUL07 100ML IV. IP-1:21JUN07 350ML IV.IP-15:05JUL07 350ML IV.
     Route: 042
     Dates: start: 20070621
  2. VENTOLIN DS [Concomitant]
     Indication: ASTHMA
     Route: 055
     Dates: start: 20020101
  3. ACETAMINOPHEN [Concomitant]
     Indication: ARTHRALGIA
     Dates: start: 20050101
  4. ACETAMINOPHEN [Concomitant]
     Indication: ABDOMINAL PAIN
     Dates: start: 20050101
  5. ACETAMINOPHEN [Concomitant]
     Indication: HEADACHE
     Dates: start: 20050101
  6. PROMETHAZINE [Concomitant]
     Indication: SEASONAL ALLERGY
     Dates: start: 20050101
  7. TELFAST [Concomitant]
     Indication: SEASONAL ALLERGY
     Dates: start: 20020101
  8. MYLANTA [Concomitant]
     Indication: GASTROOESOPHAGEAL REFLUX DISEASE

REACTIONS (2)
  - BRONCHITIS [None]
  - VULVAL ABSCESS [None]
